FAERS Safety Report 7413757-2 (Version None)
Quarter: 2011Q2

REPORT INFORMATION
  Report Type: 
  Country: None (occurrence: None)
  Receive Date: 20110413
  Receipt Date: 20110405
  Transmission Date: 20111010
  Serious: Yes (Other)
  Sender: FDA-Public Use
  Company Number: US-AMGEN-USASP2011000715

PATIENT
  Age: 55 Year
  Sex: Female
  Weight: 64.399 kg

DRUGS (1)
  1. PROLIA [Suspect]
     Indication: OSTEOPOROSIS POSTMENOPAUSAL
     Route: 030
     Dates: start: 20101228

REACTIONS (8)
  - GINGIVAL SWELLING [None]
  - BACK PAIN [None]
  - PAROTID GLAND ENLARGEMENT [None]
  - UPPER RESPIRATORY TRACT INFECTION [None]
  - LYMPH NODE PAIN [None]
  - PYREXIA [None]
  - MUSCLE SPASMS [None]
  - HYPOAESTHESIA [None]
